FAERS Safety Report 16144591 (Version 1)
Quarter: 2019Q2

REPORT INFORMATION
  Report Type: Spontaneous
  Country: CL (occurrence: CL)
  Receive Date: 20190402
  Receipt Date: 20190402
  Transmission Date: 20190711
  Serious: Yes (Other)
  Sender: FDA-Public Use
  Company Number: CL-PROVELL PHARMACEUTICALS-2065098

PATIENT
  Age: 17 Year
  Sex: Female

DRUGS (1)
  1. EUTHYROX [Suspect]
     Active Substance: LEVOTHYROXINE SODIUM
     Indication: AUTOIMMUNE THYROIDITIS

REACTIONS (13)
  - Malaise [None]
  - Appetite disorder [None]
  - Arthralgia [None]
  - Depression [None]
  - Pain in extremity [None]
  - Fatigue [None]
  - Crying [None]
  - Temperature intolerance [None]
  - Suicidal ideation [None]
  - Anxiety [Not Recovered/Not Resolved]
  - Dyspnoea [None]
  - Feeling abnormal [Not Recovered/Not Resolved]
  - Irritability [None]
